FAERS Safety Report 5311632-0 (Version None)
Quarter: 2007Q2

REPORT INFORMATION
  Report Type: 
  Country: None (occurrence: None)
  Receive Date: 20070426
  Receipt Date: 20070426
  Transmission Date: 20071010
  Serious: Yes (Life-Threatening)
  Sender: FDA-Public Use
  Company Number: None

PATIENT
  Age: 49 Year
  Sex: Female

DRUGS (6)
  1. ERLOTINIB TABLET [Suspect]
     Indication: NON-SMALL CELL LUNG CANCER
     Dosage: 150 MG, QD, ORAL
     Route: 048
     Dates: start: 20060707, end: 20070412
  2. FULVESTRANT [Suspect]
     Dosage: 250 MG IMX2,D1,28,57,QM
     Dates: start: 20060707, end: 20070412
  3. LEXAPRO [Concomitant]
  4. OXYCODONE HCL [Concomitant]
  5. ONDANSETRON [Concomitant]
  6. PROCHLORPERAZINE [Concomitant]

REACTIONS (1)
  - SUICIDAL IDEATION [None]
